FAERS Safety Report 15670535 (Version 1)
Quarter: 2018Q4

REPORT INFORMATION
  Report Type: Report from Study
  Country: US (occurrence: US)
  Receive Date: 20181129
  Receipt Date: 20181129
  Transmission Date: 20190205
  Serious: Yes (Hospitalization, Other)
  Sender: FDA-Public Use
  Company Number: US-GILEAD-2018-0376453

PATIENT
  Age: 54 Year
  Sex: Female

DRUGS (8)
  1. AMBRISENTAN [Suspect]
     Active Substance: AMBRISENTAN
     Indication: PULMONARY ARTERIAL HYPERTENSION
     Dosage: 5 MG, QD
     Route: 065
     Dates: start: 20160205
  2. ADEMPAS [Concomitant]
     Active Substance: RIOCIGUAT
  3. TEMAZEPAM. [Concomitant]
     Active Substance: TEMAZEPAM
  4. IPRATROPIUM/ALBUTEROL [Concomitant]
     Active Substance: ALBUTEROL\IPRATROPIUM
  5. COMPLERA [Suspect]
     Active Substance: EMTRICITABINE\RILPIVIRINE HYDROCHLORIDE\TENOFOVIR DISOPROXIL FUMARATE
     Indication: PRODUCT USED FOR UNKNOWN INDICATION
     Dosage: UNK
     Route: 065
  6. SULFAMETHOXAZOLE AND TRIMETHOPRIM [Concomitant]
     Active Substance: SULFAMETHOXAZOLE\TRIMETHOPRIM
  7. ORENITRAM [Concomitant]
     Active Substance: TREPROSTINIL
  8. AMOXICILLIN;CLAVULANATE POTASSIUM [Concomitant]

REACTIONS (1)
  - Pneumonia [Not Recovered/Not Resolved]

NARRATIVE: CASE EVENT DATE: 20181119
